FAERS Safety Report 11870864 (Version 1)
Quarter: 2015Q4

REPORT INFORMATION
  Report Type: Spontaneous
  Country: US (occurrence: None)
  Receive Date: 20151224
  Receipt Date: 20151224
  Transmission Date: 20160305
  Serious: Yes (Hospitalization)
  Sender: FDA-Public Use
  Company Number: None

PATIENT
  Age: 25 Year
  Sex: Male

DRUGS (12)
  1. GABAPENTIN. [Concomitant]
     Active Substance: GABAPENTIN
  2. ACETAMINOPHEN. [Concomitant]
     Active Substance: ACETAMINOPHEN
  3. HYDROXYZINE [Concomitant]
     Active Substance: HYDROXYZINE\HYDROXYZINE HYDROCHLORIDE
  4. MONTELUKAST [Concomitant]
     Active Substance: MONTELUKAST SODIUM
  5. NYSTATIN. [Concomitant]
     Active Substance: NYSTATIN
  6. ROPINIROLE. [Concomitant]
     Active Substance: ROPINIROLE
  7. VANCOMYCIN [Suspect]
     Active Substance: VANCOMYCIN
     Indication: CYSTIC FIBROSIS
     Route: 042
     Dates: start: 20150908, end: 20150908
  8. ENOXAPARIN [Concomitant]
     Active Substance: ENOXAPARIN
  9. AZITHROMYCIN [Concomitant]
     Active Substance: AZITHROMYCIN ANHYDROUS
  10. ONDANSETRON [Concomitant]
     Active Substance: ONDANSETRON
  11. LANZOPRAZOLE [Concomitant]
     Active Substance: LANSOPRAZOLE
  12. PANCREALIPASE [Concomitant]
     Active Substance: PANCRELIPASE

REACTIONS (1)
  - Drug hypersensitivity [None]

NARRATIVE: CASE EVENT DATE: 20150908
